FAERS Safety Report 9294919 (Version 1)
Quarter: 2013Q1

REPORT INFORMATION
  Report Type: Spontaneous
  Country: US (occurrence: None)
  Receive Date: 20121227
  Receipt Date: 20121227
  Transmission Date: 20140127
  Serious: Yes (Death)
  Sender: FDA-Public Use
  Company Number: PHEH2011US010149

PATIENT
  Sex: Male
  Weight: 78 kg

DRUGS (1)
  1. EXJADE (CGP 72670) [Suspect]
     Indication: LYMPHOMA
     Route: 048
     Dates: start: 20101103

REACTIONS (2)
  - Neoplasm [None]
  - Malignant neoplasm progression [None]
